FAERS Safety Report 8355396-5 (Version None)
Quarter: 2012Q2

REPORT INFORMATION
  Report Type: 
  Country: None (occurrence: None)
  Receive Date: 20120511
  Receipt Date: 20120430
  Transmission Date: 20120825
  Serious: Yes (Hospitalization)
  Sender: FDA-Public Use
  Company Number: DE-ROCHE-737061

PATIENT
  Sex: Female
  Weight: 57 kg

DRUGS (15)
  1. ACTEMRA [Suspect]
     Indication: RHEUMATOID ARTHRITIS
     Route: 042
  2. LEFLUNOMIDE [Concomitant]
     Indication: RHEUMATOID ARTHRITIS
  3. PREDNISOLONE [Concomitant]
     Indication: RHEUMATOID ARTHRITIS
  4. PREGABALIN [Concomitant]
  5. RESTEX [Concomitant]
  6. DICLOFENAC [Concomitant]
  7. DIPYRONE TAB [Concomitant]
  8. PANTOPRAZOLE [Concomitant]
  9. NSAIDS NOS [Concomitant]
     Indication: RHEUMATOID ARTHRITIS
  10. ALENDRONATE SODIUM [Concomitant]
     Dosage: 1 DOSE FORM: 70 MG ALENDRONIC ACID PLUS 70 UG COLECALCIFEROL
  11. ENALAPRIL MALEATE [Concomitant]
  12. TORSEMIDE [Concomitant]
  13. FERROUS SULFATE TAB [Concomitant]
  14. PRAMIPEXOLE DIHYDROCHLORIDE [Concomitant]
  15. CORTICOSTEROIDS (UNK INGREDIENTS) [Concomitant]
     Indication: RHEUMATOID ARTHRITIS

REACTIONS (2)
  - GANGRENE [None]
  - RHEUMATOID NODULE [None]
